FAERS Safety Report 17300984 (Version 3)
Quarter: 2020Q1

REPORT INFORMATION
  Report Type: Spontaneous
  Country: US (occurrence: US)
  Receive Date: 20200122
  Receipt Date: 20200218
  Transmission Date: 20200409
  Serious: Yes (Other)
  Sender: FDA-Public Use
  Company Number: US-PFIZER INC-2020028251

PATIENT
  Age: 46 Year
  Sex: Female

DRUGS (1)
  1. XELJANZ XR [Suspect]
     Active Substance: TOFACITINIB CITRATE
     Dosage: 11 MG
     Dates: start: 201912

REACTIONS (8)
  - Vomiting [Unknown]
  - Dysphonia [Unknown]
  - Dysuria [Unknown]
  - Pruritus [Unknown]
  - Rash [Unknown]
  - Urinary tract infection [Unknown]
  - Dermatitis acneiform [Unknown]
  - Wound infection [Unknown]

NARRATIVE: CASE EVENT DATE: 201912
